FAERS Safety Report 5938055-5 (Version None)
Quarter: 2008Q4

REPORT INFORMATION
  Report Type: 
  Country: None (occurrence: None)
  Receive Date: 20081031
  Receipt Date: 20081023
  Transmission Date: 20090506
  Serious: Yes (Hospitalization)
  Sender: FDA-Public Use
  Company Number: PHHY2008MX25939

PATIENT
  Sex: Female

DRUGS (3)
  1. DIOVAN [Suspect]
     Indication: HYPERTENSION
     Dosage: 1 TABLET (320 MG) PER DAY
     Route: 048
     Dates: start: 20051105, end: 20081003
  2. DIOVAN [Suspect]
     Dosage: 1 TABLET (160 MG) PER DAY
     Route: 048
     Dates: start: 20081003
  3. HUMULIN [Concomitant]
     Indication: DIABETES MELLITUS
     Dosage: UNK
     Dates: start: 19991023

REACTIONS (3)
  - DEHYDRATION [None]
  - FLUID RETENTION [None]
  - INFARCTION [None]
